FAERS Safety Report 5963720-3 (Version None)
Quarter: 2008Q4

REPORT INFORMATION
  Report Type: 
  Country: None (occurrence: None)
  Receive Date: 20081121
  Receipt Date: 20081121
  Transmission Date: 20090506
  Serious: Yes (Other)
  Sender: FDA-Public Use
  Company Number: None

PATIENT
  Age: 59 Year
  Sex: Male

DRUGS (1)
  1. JANUVIA [Suspect]
     Dosage: 100 MG PO DAILY
     Route: 048
     Dates: start: 20080708, end: 20080725

REACTIONS (4)
  - BLISTER [None]
  - DRUG ERUPTION [None]
  - OEDEMA PERIPHERAL [None]
  - SKIN EXFOLIATION [None]
